FAERS Safety Report 16417010 (Version 1)
Quarter: 2019Q2

REPORT INFORMATION
  Report Type: Spontaneous
  Country: US (occurrence: US)
  Receive Date: 20190611
  Receipt Date: 20190611
  Transmission Date: 20190711
  Serious: No
  Sender: FDA-Public Use
  Company Number: US-009507513-1906USA002733

PATIENT

DRUGS (3)
  1. ZETIA [Suspect]
     Active Substance: EZETIMIBE
     Route: 048
  2. HUMIRA [Concomitant]
     Active Substance: ADALIMUMAB
  3. METHOTREXATE. [Concomitant]
     Active Substance: METHOTREXATE

REACTIONS (2)
  - Diarrhoea [Unknown]
  - Bile output increased [Unknown]
